FAERS Safety Report 17074255 (Version 1)
Quarter: 2019Q4

REPORT INFORMATION
  Report Type: Spontaneous
  Country: BR (occurrence: BR)
  Receive Date: 20191126
  Receipt Date: 20191126
  Transmission Date: 20200122
  Serious: Yes (Disabling)
  Sender: FDA-Public Use
  Company Number: BR-TAKEDA-2019TUS067401

PATIENT
  Age: 79 Year
  Sex: Female

DRUGS (1)
  1. DEXILANT [Suspect]
     Active Substance: DEXLANSOPRAZOLE
     Indication: GASTROOESOPHAGEAL REFLUX DISEASE
     Dosage: 30 MILLIGRAM, QD
     Route: 048

REACTIONS (3)
  - Asthenia [Recovered/Resolved]
  - Presyncope [Recovered/Resolved]
  - Diarrhoea [Recovered/Resolved]
